FAERS Safety Report 7370013-9 (Version None)
Quarter: 2011Q1

REPORT INFORMATION
  Report Type: 
  Country: None (occurrence: None)
  Receive Date: 20110323
  Receipt Date: 20110309
  Transmission Date: 20110831
  Serious: Yes (Hospitalization, Other)
  Sender: FDA-Public Use
  Company Number: PHHY2011DE00592

PATIENT
  Sex: Male
  Weight: 65 kg

DRUGS (3)
  1. ZOMETA [Suspect]
     Dosage: UNK
     Dates: start: 20101215
  2. ZOMETA [Suspect]
     Dosage: 4 MG, UNK
  3. RAMIPRIL [Concomitant]
     Dosage: UNK

REACTIONS (7)
  - NEPHROTIC SYNDROME [None]
  - HAEMOLYSIS [None]
  - PROTEINURIA [None]
  - HAEMOLYTIC URAEMIC SYNDROME [None]
  - NAUSEA [None]
  - VOMITING [None]
  - HYPOCALCAEMIA [None]
